FAERS Safety Report 8710046 (Version 2)
Quarter: 2013Q2

REPORT INFORMATION
  Report Type: Spontaneous
  Country: NO (occurrence: NO)
  Receive Date: 20120806
  Receipt Date: 20130503
  Transmission Date: 20140414
  Serious: Yes (Other)
  Sender: FDA-Public Use
  Company Number: NO-ROCHE-1097686

PATIENT
  Age: 43 Year
  Sex: Female

DRUGS (4)
  1. XOLAIR [Suspect]
     Indication: ASTHMA
     Route: 065
     Dates: start: 201110
  2. XOLAIR [Suspect]
     Indication: HYPERSENSITIVITY
     Route: 065
     Dates: start: 20120731
  3. AERIUS [Concomitant]
  4. SYMBICORT [Concomitant]

REACTIONS (4)
  - Blood pressure increased [Unknown]
  - Tachycardia [Unknown]
  - Tremor [Unknown]
  - Malaise [Unknown]
